FAERS Safety Report 8052713-0 (Version None)
Quarter: 2012Q1

REPORT INFORMATION
  Report Type: 
  Country: None (occurrence: None)
  Receive Date: 20120118
  Receipt Date: 20120118
  Transmission Date: 20120608
  Serious: Yes (Life-Threatening)
  Sender: FDA-Public Use
  Company Number: None

PATIENT
  Sex: Female
  Weight: 8.1646 kg

DRUGS (1)
  1. HYLANDS TEETHING TABLETS [Suspect]
     Indication: TEETHING
     Dosage: 2 TABLETS
     Route: 048
     Dates: start: 20120113, end: 20120113

REACTIONS (5)
  - PALLOR [None]
  - HYPOTONIA [None]
  - DEPRESSED LEVEL OF CONSCIOUSNESS [None]
  - EYE MOVEMENT DISORDER [None]
  - HYPOPNOEA [None]
